FAERS Safety Report 9398343 (Version 1)
Quarter: 2013Q3

REPORT INFORMATION
  Report Type: Spontaneous
  Country: US (occurrence: US)
  Receive Date: 20130712
  Receipt Date: 20130712
  Transmission Date: 20140515
  Serious: Yes (Hospitalization)
  Sender: FDA-Public Use
  Company Number: US-NICOBRDEVP-2013-11930

PATIENT
  Age: 58 Year
  Sex: Female
  Weight: 66 kg

DRUGS (2)
  1. TOPIRAMATE (WATSON LABORATORIES) [Suspect]
     Indication: MIGRAINE
     Dosage: 0.5 DF, DAILY
     Route: 048
     Dates: start: 200908, end: 201106
  2. ATIVAN [Suspect]
     Indication: PRODUCT USED FOR UNKNOWN INDICATION
     Dosage: UNK, UNKNOWN
     Route: 065

REACTIONS (4)
  - Depression [Recovered/Resolved]
  - Cognitive disorder [Recovered/Resolved]
  - Weight decreased [Recovered/Resolved]
  - Overdose [Recovered/Resolved]
